FAERS Safety Report 9825448 (Version 1)
Quarter: 2013Q4

REPORT INFORMATION
  Report Type: Spontaneous
  Country: US (occurrence: None)
  Receive Date: 20131101
  Receipt Date: 20131101
  Transmission Date: 20140711
  Serious: Yes (Other)
  Sender: FDA-Public Use
  Company Number: ID NR. 2428_SP

PATIENT
  Age: 33 Year
  Sex: Female
  Weight: 60.8 kg

DRUGS (5)
  1. LEVOFLOXACIN/DEXTROSE [Suspect]
     Indication: DIVERTICULITIS
     Route: 042
     Dates: start: 20130609, end: 20130609
  2. DEMEROL 25MG [Concomitant]
  3. FLOMAX 0.4MG [Concomitant]
  4. KETORLAC 30 MG [Concomitant]
  5. ZOFRAN 4MG [Concomitant]

REACTIONS (1)
  - Rash [None]
